FAERS Safety Report 16213861 (Version 5)
Quarter: 2020Q2

REPORT INFORMATION
  Report Type: Report from Study
  Country: DE (occurrence: DE)
  Receive Date: 20190418
  Receipt Date: 20200506
  Transmission Date: 20200713
  Serious: Yes (Life-Threatening, Hospitalization, Other)
  Sender: FDA-Public Use
  Company Number: DE-BRISTOL-MYERS SQUIBB COMPANY-BMS-2019-034387

PATIENT
  Age: 52 Year
  Sex: Male
  Weight: 65 kg

DRUGS (37)
  1. JAKAVI [RUXOLITINIB PHOSPHATE] [Suspect]
     Active Substance: RUXOLITINIB PHOSPHATE
     Indication: PRIMARY MYELOFIBROSIS
     Dosage: 40 MILLIGRAM, QD
     Route: 065
     Dates: end: 20181002
  2. PREDNISOLONE. [Concomitant]
     Active Substance: PREDNISOLONE
     Indication: PRODUCT USED FOR UNKNOWN INDICATION
     Dosage: 7.5 MILLIGRAM,  EVERY 2 DAYS
     Route: 065
  3. NOVAMINSULFON [Concomitant]
     Active Substance: METAMIZOLE
     Indication: PRODUCT USED FOR UNKNOWN INDICATION
     Dosage: 500 MILLIGRAM, QD
     Route: 065
     Dates: end: 20190428
  4. HYDROXYUREA. [Suspect]
     Active Substance: HYDROXYUREA
     Indication: PRODUCT USED FOR UNKNOWN INDICATION
     Dosage: 500 MILLIGRAM, QD
     Route: 065
     Dates: end: 20180922
  5. PREDNISOLONE. [Concomitant]
     Active Substance: PREDNISOLONE
     Indication: PRODUCT USED FOR UNKNOWN INDICATION
     Dosage: 2.5 MILLIGRAM
     Route: 065
  6. JAKAVI [RUXOLITINIB PHOSPHATE] [Suspect]
     Active Substance: RUXOLITINIB PHOSPHATE
     Indication: MYELODYSPLASTIC SYNDROME
     Dosage: 15 MILLIGRAM, BID
     Route: 065
     Dates: end: 20181018
  7. EXJADE [Suspect]
     Active Substance: DEFERASIROX
     Indication: MYELODYSPLASTIC SYNDROME
     Dosage: 26.5 MILLIGRAM/KILOGRAM
     Route: 065
  8. HYDROXYUREA. [Suspect]
     Active Substance: HYDROXYUREA
     Indication: PRIMARY MYELOFIBROSIS
     Dosage: 500 MILLIGRAM, QD
     Route: 065
     Dates: end: 20180906
  9. HYDROXYUREA. [Suspect]
     Active Substance: HYDROXYUREA
     Indication: PRODUCT USED FOR UNKNOWN INDICATION
     Dosage: 1500 MILLIGRAM, QD
     Route: 065
     Dates: end: 20190624
  10. HYDROXYUREA. [Suspect]
     Active Substance: HYDROXYUREA
     Indication: PRODUCT USED FOR UNKNOWN INDICATION
     Dosage: 500 MILLIGRAM, BID
     Route: 065
     Dates: end: 20190703
  11. HYDROXYUREA. [Suspect]
     Active Substance: HYDROXYUREA
     Indication: PRODUCT USED FOR UNKNOWN INDICATION
     Dosage: 1500 MILLIGRAM
     Route: 065
  12. MACROGOL [Concomitant]
     Active Substance: POLYETHYLENE GLYCOLS
     Indication: LARGE INTESTINAL OBSTRUCTION
     Dosage: 13.7 GRAM
     Route: 065
  13. HYDROXYUREA. [Suspect]
     Active Substance: HYDROXYUREA
     Indication: PRODUCT USED FOR UNKNOWN INDICATION
     Dosage: 500 MILLIGRAM, BID
     Route: 065
     Dates: end: 20190304
  14. HYDROXYUREA. [Suspect]
     Active Substance: HYDROXYUREA
     Indication: PRODUCT USED FOR UNKNOWN INDICATION
     Dosage: 1000 MILLIGRAM, BID
     Route: 065
     Dates: end: 20190616
  15. HYDROXYUREA. [Suspect]
     Active Substance: HYDROXYUREA
     Indication: PRODUCT USED FOR UNKNOWN INDICATION
     Dosage: 1200 MG, 3DAYS AND 1000 MG 4 DAYS
     Route: 065
     Dates: end: 20190711
  16. JAKAVI [RUXOLITINIB PHOSPHATE] [Suspect]
     Active Substance: RUXOLITINIB PHOSPHATE
     Indication: PRODUCT USED FOR UNKNOWN INDICATION
     Dosage: 15 MILLIGRAM, BID
     Route: 065
     Dates: end: 20180118
  17. ENBREL [Concomitant]
     Active Substance: ETANERCEPT
     Indication: RHEUMATOID ARTHRITIS
     Dosage: 7.14 MILLIGRAM, Q2WK
     Route: 065
     Dates: end: 20180902
  18. NOVAMINSULFON [Concomitant]
     Active Substance: METAMIZOLE
     Indication: PROPHYLAXIS
     Dosage: 2215 MILLIGRAM, QD, 553.75 MG, QID (MAX 2250 MG X 4 TIMES DAY)
     Route: 065
  19. HYDROXYUREA. [Suspect]
     Active Substance: HYDROXYUREA
     Indication: PRODUCT USED FOR UNKNOWN INDICATION
     Dosage: 500 MILLIGRAM, BID
     Route: 065
     Dates: end: 20181011
  20. HYDROXYUREA. [Suspect]
     Active Substance: HYDROXYUREA
     Indication: PRODUCT USED FOR UNKNOWN INDICATION
     Dosage: 1000 MILLIGRAM, BID
     Route: 065
     Dates: end: 20190408
  21. HYDROXYUREA. [Suspect]
     Active Substance: HYDROXYUREA
     Indication: PRODUCT USED FOR UNKNOWN INDICATION
     Dosage: 500 MILLIGRAM, BID
     Route: 065
  22. JAKAVI [RUXOLITINIB PHOSPHATE] [Suspect]
     Active Substance: RUXOLITINIB PHOSPHATE
     Indication: PRODUCT USED FOR UNKNOWN INDICATION
     Dosage: 10 MILLIGRAM, BID
     Route: 065
  23. EXJADE [Suspect]
     Active Substance: DEFERASIROX
     Indication: PRODUCT USED FOR UNKNOWN INDICATION
     Dosage: 21 UNK
     Route: 065
     Dates: end: 20190123
  24. FRESUBIN ENERGY (CARBOHYDRATES\FATTY ACIDS\MINERALS\PROTEIN\VITAMINS) [Concomitant]
     Active Substance: CARBOHYDRATES\FATTY ACIDS\MINERALS\PROTEIN\VITAMINS
     Indication: CACHEXIA
     Dosage: 2 DOSAGE FORM, QD
     Route: 065
  25. PANTOPRAZOLE [Concomitant]
     Active Substance: PANTOPRAZOLE
     Indication: PROPHYLAXIS
     Dosage: 40 MILLIGRAM, QD
     Route: 065
  26. PREDNISOLONE. [Concomitant]
     Active Substance: PREDNISOLONE
     Indication: RHEUMATOID ARTHRITIS
     Dosage: 5 MILLIGRAM, QD
     Route: 065
     Dates: end: 20180902
  27. HYDROXYUREA. [Suspect]
     Active Substance: HYDROXYUREA
     Indication: PRODUCT USED FOR UNKNOWN INDICATION
     Dosage: 785.7 MILLIGRAM, QD
     Route: 065
     Dates: end: 20181023
  28. HYDROXYUREA. [Suspect]
     Active Substance: HYDROXYUREA
     Indication: PRODUCT USED FOR UNKNOWN INDICATION
     Dosage: 1500 MILLIGRAM, QD
     Route: 065
     Dates: end: 20190519
  29. HYDROXYCARBAMIDE [Suspect]
     Active Substance: HYDROXYUREA
     Indication: PRIMARY MYELOFIBROSIS
     Dosage: 500 MILLIGRAM, BID
     Route: 065
     Dates: end: 20190711
  30. HYDROXYCARBAMIDE [Suspect]
     Active Substance: HYDROXYUREA
     Indication: MYELODYSPLASTIC SYNDROME
     Route: 065
  31. TORASEMIDE [Concomitant]
     Active Substance: TORSEMIDE
     Indication: RHEUMATOID ARTHRITIS
     Dosage: 10 MILLIGRAM, QD
     Route: 065
  32. ALLOPURINOL. [Concomitant]
     Active Substance: ALLOPURINOL
     Indication: PROPHYLAXIS
     Dosage: 100 MILLIGRAM, QD
     Route: 065
  33. HYDROXYUREA. [Suspect]
     Active Substance: HYDROXYUREA
     Indication: MYELODYSPLASTIC SYNDROME
     Dosage: 500 MILLIGRAM, BID
     Route: 065
     Dates: end: 20180916
  34. HYDROXYUREA. [Suspect]
     Active Substance: HYDROXYUREA
     Indication: PRODUCT USED FOR UNKNOWN INDICATION
     Dosage: 1500 MILLIGRAM, QD
     Route: 065
     Dates: end: 20180924
  35. JAKAVI [RUXOLITINIB PHOSPHATE] [Suspect]
     Active Substance: RUXOLITINIB PHOSPHATE
     Indication: PRODUCT USED FOR UNKNOWN INDICATION
     Dosage: 20 MILLIGRAM, QD
     Route: 065
  36. EXJADE [Suspect]
     Active Substance: DEFERASIROX
     Indication: PRIMARY MYELOFIBROSIS
     Dosage: 21 MILLIGRAM/KILOGRAM
     Route: 065
     Dates: end: 20190123
  37. TORASEMIDE [Concomitant]
     Active Substance: TORSEMIDE
     Indication: PRODUCT USED FOR UNKNOWN INDICATION
     Dosage: 7.5 MILLIGRAM, QOD
     Route: 065

REACTIONS (17)
  - Blood urea increased [Unknown]
  - C-reactive protein decreased [Unknown]
  - Thrombocytopenia [Not Recovered/Not Resolved]
  - Concomitant disease aggravated [Not Recovered/Not Resolved]
  - Leukocytosis [Not Recovered/Not Resolved]
  - Blood bilirubin increased [Unknown]
  - Infection [Recovered/Resolved]
  - Hyperleukocytosis [Recovering/Resolving]
  - Wound infection [Unknown]
  - C-reactive protein increased [Unknown]
  - Blood uric acid increased [Unknown]
  - Blood folate decreased [Unknown]
  - Anaemia [Recovering/Resolving]
  - Back pain [Unknown]
  - Decubitus ulcer [Unknown]
  - Serum ferritin increased [Unknown]
  - Blood lactate dehydrogenase increased [Unknown]

NARRATIVE: CASE EVENT DATE: 20180206
